FAERS Safety Report 13569727 (Version 3)
Quarter: 2018Q1

REPORT INFORMATION
  Report Type: Spontaneous
  Country: US (occurrence: US)
  Receive Date: 20170522
  Receipt Date: 20180209
  Transmission Date: 20180508
  Serious: No
  Sender: FDA-Public Use
  Company Number: US-TAIHO ONCOLOGY INC-EU-2017-00793

PATIENT
  Age: 70 Year
  Sex: Female

DRUGS (3)
  1. LONSURF [Suspect]
     Active Substance: TIPIRACIL HYDROCHLORIDE\TRIFLURIDINE
     Indication: COLON CANCER
     Route: 048
     Dates: start: 20170127
  2. LORAZEPAM. [Concomitant]
     Active Substance: LORAZEPAM
     Dosage: NI
  3. PROCHLORPERAZINE. [Concomitant]
     Active Substance: PROCHLORPERAZINE
     Dosage: NI

REACTIONS (1)
  - Ureteral stent insertion [Recovered/Resolved]

NARRATIVE: CASE EVENT DATE: 20170406
